FAERS Safety Report 5271575-8 (Version None)
Quarter: 2007Q1

REPORT INFORMATION
  Report Type: 
  Country: None (occurrence: None)
  Receive Date: 20061214
  Receipt Date: 20060821
  Transmission Date: 20070707
  Serious: Yes (Other)
  Sender: FDA-Public Use
  Company Number: 2006105880

PATIENT
  Sex: Male

DRUGS (2)
  1. BEXTRA [Suspect]
     Indication: INFLAMMATION
     Dates: start: 20020801, end: 20021201
  2. BEXTRA [Suspect]
     Indication: PAIN
     Dates: start: 20020801, end: 20021201

REACTIONS (1)
  - PULMONARY EMBOLISM [None]
